FAERS Safety Report 11930677 (Version 1)
Quarter: 2016Q1

REPORT INFORMATION
  Report Type: Spontaneous
  Country: US (occurrence: None)
  Receive Date: 20160119
  Receipt Date: 20160119
  Transmission Date: 20160526
  Serious: No
  Sender: FDA-Public Use
  Company Number: None

PATIENT
  Age: 43 Year
  Sex: Female
  Weight: 71.5 kg

DRUGS (1)
  1. VENOFER [Suspect]
     Active Substance: IRON SUCROSE
     Indication: IRON DEFICIENCY ANAEMIA
     Route: 042
     Dates: start: 20151216, end: 20151216

REACTIONS (5)
  - Infusion site thrombosis [None]
  - Lymphadenopathy [None]
  - Infusion site cellulitis [None]
  - Drug hypersensitivity [None]
  - Infusion site induration [None]

NARRATIVE: CASE EVENT DATE: 20151216
